FAERS Safety Report 9940961 (Version 2)
Quarter: 2014Q1

REPORT INFORMATION
  Report Type: Spontaneous
  Country: FR (occurrence: FR)
  Receive Date: 20140303
  Receipt Date: 20140303
  Transmission Date: 20141002
  Serious: Yes (Other)
  Sender: FDA-Public Use
  Company Number: FR-TEVA-462170ISR

PATIENT
  Sex: Female

DRUGS (5)
  1. PROPRANOLOL RATIOPHARM 160MG [Suspect]
     Indication: GASTROINTESTINAL HAEMORRHAGE
     Dosage: 160 MILLIGRAM DAILY;
     Dates: start: 2011, end: 2012
  2. AVLOCARDYL [Suspect]
     Indication: GASTROINTESTINAL HAEMORRHAGE
     Dosage: 80 MILLIGRAM DAILY;
     Route: 048
     Dates: start: 2011, end: 2011
  3. AVLOCARDYL [Suspect]
     Dosage: 160 MILLIGRAM DAILY;
     Route: 048
     Dates: start: 2012
  4. ARIXTRA [Concomitant]
  5. IRON [Concomitant]
     Indication: ANAEMIA
     Dosage: 2 DOSAGE FORMS DAILY; LONG-TERM TREATMENT

REACTIONS (9)
  - Blood pressure decreased [Not Recovered/Not Resolved]
  - Syncope [Recovered/Resolved]
  - Loss of consciousness [Recovered/Resolved]
  - Malaise [Unknown]
  - Malaise [Unknown]
  - Nausea [Unknown]
  - Vomiting [Unknown]
  - Dizziness [Unknown]
  - Product substitution issue [Unknown]
